FAERS Safety Report 10700229 (Version 1)
Quarter: 2015Q1

REPORT INFORMATION
  Report Type: Spontaneous
  Country: US (occurrence: None)
  Receive Date: 20150107
  Receipt Date: 20150107
  Transmission Date: 20150721
  Serious: Yes (Hospitalization, Other)
  Sender: FDA-Public Use
  Company Number: US-ZYDUS-006296

PATIENT
  Age: 23 Year
  Sex: Female

DRUGS (3)
  1. TRAMADOL (TRAMADOL) [Suspect]
     Active Substance: TRAMADOL
  2. NAPROXEN (NAPROXEN) [Suspect]
     Active Substance: NAPROXEN
  3. METAXALONE (METAXALONE) [Suspect]
     Active Substance: METAXALONE

REACTIONS (15)
  - Status epilepticus [None]
  - Somnolence [None]
  - Hyperthermia [None]
  - Serotonin syndrome [None]
  - Intentional overdose [None]
  - Miosis [None]
  - Autonomic nervous system imbalance [None]
  - Unresponsive to stimuli [None]
  - Hypotonia [None]
  - Mydriasis [None]
  - Heart rate increased [None]
  - Suicidal behaviour [None]
  - Blood pressure increased [None]
  - Respiratory depression [None]
  - Muscle rigidity [None]
